FAERS Safety Report 8756893 (Version 1)
Quarter: 2012Q4

REPORT INFORMATION
  Report Type: 
  Country: CA (occurrence: CA)
  Receive Date: 20120828
  Receipt Date: 20120828
  Transmission Date: 20130627
  Serious: Yes (Other)
  Sender: FDA-Public Use
  Company Number: CA-NOVOPROD-358570

PATIENT
  Age: 30 Year
  Sex: Female

DRUGS (2)
  1. VICTOZA [Suspect]
     Indication: DIABETES MELLITUS
     Dosage: 1.2 mg, qd
     Route: 058
  2. VICTOZA [Suspect]
     Dosage: 1.2 mg, qd
     Route: 058

REACTIONS (2)
  - Appendicitis [Recovered/Resolved]
  - Constipation [Recovered/Resolved]
